FAERS Safety Report 6340851-X (Version None)
Quarter: 2009Q3

REPORT INFORMATION
  Report Type: 
  Country: None (occurrence: None)
  Receive Date: 20090904
  Receipt Date: 20090824
  Transmission Date: 20100115
  Serious: Yes (Death)
  Sender: FDA-Public Use
  Company Number: IN-PFIZER INC-2009236849

PATIENT

DRUGS (1)
  1. DALACIN [Suspect]
     Indication: INFECTION
     Dosage: 600 MG, 2X/DAY
     Route: 042

REACTIONS (1)
  - GRANULOCYTOPENIA [None]
